FAERS Safety Report 7231860-7 (Version None)
Quarter: 2011Q1

REPORT INFORMATION
  Report Type: 
  Country: None (occurrence: None)
  Receive Date: 20110118
  Receipt Date: 20110112
  Transmission Date: 20110831
  Serious: Yes (Death)
  Sender: FDA-Public Use
  Company Number: RU-ASTRAZENECA-2011SE02154

PATIENT
  Age: 0 Week

DRUGS (4)
  1. STABISOL GAK [Concomitant]
     Route: 064
     Dates: start: 20110101
  2. PREMEDICATION DRUGS (NOT SPECIFIED) [Concomitant]
     Route: 064
     Dates: start: 20110101
  3. MARCAINE [Suspect]
     Dosage: 15 MG TEST DOSE AND 85 MG MAIN DOSE. TOTAL DOSE WAS 100 MG.
     Route: 064
     Dates: start: 20110101, end: 20110101
  4. SALINE [Concomitant]
     Route: 064
     Dates: start: 20110101

REACTIONS (3)
  - OXYGEN SATURATION DECREASED [None]
  - HYPOXIA [None]
  - DEATH [None]
